FAERS Safety Report 8294693 (Version 2)
Quarter: 2012Q4

REPORT INFORMATION
  Report Type: 
  Country: US (occurrence: US)
  Receive Date: 20111216
  Receipt Date: 20121217
  Transmission Date: 20130627
  Serious: No
  Sender: FDA-Public Use
  Company Number: US-ABBOTT-11P-163-0869692-00

PATIENT
  Age: 55 Year
  Sex: Female
  Weight: 68.55 kg

DRUGS (4)
  1. TRILIPIX [Suspect]
     Indication: BLOOD TRIGLYCERIDES INCREASED
     Dates: start: 20111006
  2. ATENOLOL [Concomitant]
     Indication: HYPERTENSION
  3. PREMARIN [Concomitant]
     Indication: HORMONE REPLACEMENT THERAPY
  4. PAXIL [Concomitant]
     Indication: ANXIETY

REACTIONS (1)
  - Respiratory tract infection [Not Recovered/Not Resolved]
